FAERS Safety Report 16332905 (Version 15)
Quarter: 2021Q3

REPORT INFORMATION
  Report Type: Spontaneous
  Country: US (occurrence: US)
  Receive Date: 20190520
  Receipt Date: 20210811
  Transmission Date: 20211014
  Serious: Yes (Other)
  Sender: FDA-Public Use
  Company Number: US-PFIZER INC-2019212401

PATIENT
  Age: 79 Year
  Sex: Female

DRUGS (13)
  1. XGEVA [Concomitant]
     Active Substance: DENOSUMAB
     Indication: BONE DISORDER
     Dosage: 120 MG, CYCLIC (SHOT EVERY 12 WEEKS)
     Dates: start: 20190716
  2. VITAMIN D [COLECALCIFEROL] [Concomitant]
     Active Substance: CHOLECALCIFEROL
     Dosage: UNK
  3. SYNTHROID [Concomitant]
     Active Substance: LEVOTHYROXINE SODIUM
     Indication: BLOOD PRESSURE ABNORMAL
     Dosage: 88 UG, UNK
     Dates: start: 20190724
  4. IBRANCE [Suspect]
     Active Substance: PALBOCICLIB
     Dosage: 100 MG, CYCLIC (DAILY FOR 3 WEEKS ON AND 1 WEEK OFF)
     Route: 048
     Dates: start: 20190721
  5. FASLODEX [Concomitant]
     Active Substance: FULVESTRANT
     Indication: HORMONE THERAPY
     Dosage: 2 DF, MONTHLY
  6. ATORVASTATIN CALCIUM. [Concomitant]
     Active Substance: ATORVASTATIN CALCIUM
     Indication: LIPIDS INCREASED
     Dosage: 10 MG, DAILY
     Dates: start: 20190327
  7. VALIUM [Concomitant]
     Active Substance: DIAZEPAM
     Dosage: 5 MG, AS NEEDED (AS NEEDED AT BEDTIME)
  8. LIPITOR [Concomitant]
     Active Substance: ATORVASTATIN CALCIUM
     Indication: LIPIDS INCREASED
     Dosage: 10 MG, DAILY
     Dates: start: 20190327
  9. IBRANCE [Suspect]
     Active Substance: PALBOCICLIB
     Dosage: 100 MG, DAILY
     Route: 048
     Dates: start: 20181227
  10. ATORVASTATIN CALCIUM. [Concomitant]
     Active Substance: ATORVASTATIN CALCIUM
     Indication: BLOOD PRESSURE ABNORMAL
  11. SYNTHROID [Concomitant]
     Active Substance: LEVOTHYROXINE SODIUM
     Indication: HYPOTHYROIDISM
     Dosage: 88 MG, DAILY
  12. IBRANCE [Suspect]
     Active Substance: PALBOCICLIB
     Dosage: 75 MG, CYCLIC 14 DAYS ON AND 1 WEEK OFF.
     Route: 048
     Dates: start: 20200114
  13. IBRANCE [Suspect]
     Active Substance: PALBOCICLIB
     Indication: BREAST CANCER METASTATIC
     Dosage: 125 MG, CYCLIC (ONCE A DAY, 3 WEEKS THEN 1 WEEK OFF ? NO MED)
     Route: 048
     Dates: start: 20181227

REACTIONS (10)
  - Alopecia [Unknown]
  - Nasopharyngitis [Unknown]
  - Pruritus [Recovered/Resolved]
  - Influenza [Unknown]
  - Sleep disorder [Unknown]
  - Loss of consciousness [Recovered/Resolved]
  - Fatigue [Recovered/Resolved]
  - Confusional state [Unknown]
  - Neoplasm progression [Unknown]
  - Rash [Recovered/Resolved]

NARRATIVE: CASE EVENT DATE: 20190129
